FAERS Safety Report 5689408-4 (Version None)
Quarter: 2008Q1

REPORT INFORMATION
  Report Type: 
  Country: None (occurrence: None)
  Receive Date: 20080328
  Receipt Date: 20080212
  Transmission Date: 20080703
  Serious: Yes (Hospitalization, Other)
  Sender: FDA-Public Use
  Company Number: US021953

PATIENT
  Sex: Male
  Weight: 72.5755 kg

DRUGS (62)
  1. ACTIQ [Suspect]
     Indication: POST LAMINECTOMY SYNDROME
     Dosage: 400 UG SPARINGLY BUCCAL
     Route: 002
     Dates: start: 20020917, end: 20030401
  2. ACTIQ [Suspect]
     Indication: POST LAMINECTOMY SYNDROME
     Dosage: 400 UG Q6-8 HOURS PRN BUCCAL
     Route: 002
     Dates: start: 20030401, end: 20030601
  3. ACTIQ [Suspect]
     Indication: POST LAMINECTOMY SYNDROME
     Dosage: 600 UG Q6-8 HOURS PRN BUCCAL
     Route: 002
     Dates: start: 20030601, end: 20031212
  4. ACTIQ [Suspect]
     Indication: POST LAMINECTOMY SYNDROME
     Dosage: 800 UG Q6 HOURS PRN BUCCAL
     Route: 002
     Dates: start: 20031212, end: 20040501
  5. ACTIQ [Suspect]
     Indication: POST LAMINECTOMY SYNDROME
     Dosage: ONE QD BUCCAL
     Route: 002
     Dates: start: 20040601, end: 20040801
  6. ACTIQ [Suspect]
     Dosage: 800 UG OCCASSIONAL BUCCAL A FEW MONTHS
     Route: 002
     Dates: start: 20050629
  7. ACTIQ [Suspect]
     Indication: POST LAMINECTOMY SYNDROME
     Dosage: 800 UG TID BUCCAL
     Route: 002
     Dates: start: 20050609, end: 20050901
  8. ACTIQ [Suspect]
     Indication: POST LAMINECTOMY SYNDROME
     Dosage: 1200 UG TID BUCCAL
     Route: 002
     Dates: start: 20050901, end: 20051004
  9. ACTIQ [Suspect]
     Indication: POST LAMINECTOMY SYNDROME
     Dosage: 800 UG QID BUCCAL
     Route: 002
     Dates: start: 20051004, end: 20051215
  10. ACTIQ [Suspect]
     Indication: POST LAMINECTOMY SYNDROME
     Dosage: 1200 UG AND 800 UG AS DIRECTED QID BUCCAL
     Route: 002
     Dates: start: 20051215, end: 20060103
  11. ACTIQ [Suspect]
     Indication: POST LAMINECTOMY SYNDROME
     Dosage: 800 UG AND 1200 UG AS DIRECTED BID BUCCAL
     Route: 002
     Dates: start: 20060103, end: 20060301
  12. ACTIQ [Suspect]
     Indication: POST LAMINECTOMY SYNDROME
     Dosage: 1200 UG MAXIMUM 5/DAY BUCCAL
     Route: 002
     Dates: start: 20060301, end: 20060530
  13. ACTIQ [Suspect]
     Indication: POST LAMINECTOMY SYNDROME
     Dosage: 1200 UG Q4HR BUCCAL
     Route: 002
     Dates: start: 20060530, end: 20060906
  14. ACTIQ [Suspect]
     Indication: POST LAMINECTOMY SYNDROME
     Dosage: 1600 UG Q4HR BUCCAL
     Route: 002
     Dates: start: 20060906, end: 20061106
  15. ACTIQ [Suspect]
     Indication: POST LAMINECTOMY SYNDROME
     Dosage: 800 UG TID BUCCAL
     Route: 002
     Dates: start: 20061211, end: 20061217
  16. ACTIQ [Suspect]
     Indication: POST LAMINECTOMY SYNDROME
     Dosage: 800 UG TID BUCCAL
     Route: 002
     Dates: start: 20061220, end: 20070112
  17. ACTIQ [Suspect]
     Indication: POST LAMINECTOMY SYNDROME
     Dosage: 800 UG BID BUCCAL
     Route: 002
     Dates: start: 20070112, end: 20070119
  18. DURAGESIC-100 [Suspect]
     Indication: POST LAMINECTOMY SYNDROME
     Dosage: 25 UG Q72HR TRANSDERMAL
     Route: 062
     Dates: start: 20021121, end: 20030421
  19. DURAGESIC-100 [Suspect]
     Indication: POST LAMINECTOMY SYNDROME
     Dosage: 50 UG Q72HR TRANSDERMAL
     Route: 062
     Dates: start: 20030421, end: 20031212
  20. DURAGESIC-100 [Suspect]
     Indication: POST LAMINECTOMY SYNDROME
     Dosage: 75 UG Q72HR TRANSDERMAL
     Route: 062
     Dates: start: 20031212, end: 20040513
  21. DURAGESIC-100 [Suspect]
     Indication: POST LAMINECTOMY SYNDROME
     Dosage: 75UG Q72HR TRANSDERMAL
     Route: 062
     Dates: start: 20041115, end: 20050609
  22. DURAGESIC-100 [Suspect]
     Indication: POST LAMINECTOMY SYNDROME
     Dosage: 75 UG Q72HR TRANSDERMAL
     Route: 062
     Dates: end: 20060323
  23. DURAGESIC-100 [Suspect]
     Indication: POST LAMINECTOMY SYNDROME
     Dosage: 50 UG Q72HR TRANSDERMAL
     Route: 062
     Dates: start: 20060323, end: 20070119
  24. DILAUDID [Suspect]
     Indication: POST LAMINECTOMY SYNDROME
     Dosage: 4 MG TID
     Dates: start: 20051103, end: 20061216
  25. DILAUDID [Suspect]
     Indication: POST LAMINECTOMY SYNDROME
     Dosage: 40 MG ONCE ORAL
     Route: 048
     Dates: start: 20061217, end: 20061217
  26. VALIUM [Suspect]
     Dates: start: 20050811
  27. VALIUM [Suspect]
     Dosage: 100 MG ONCE ORAL
     Route: 048
     Dates: start: 20061217, end: 20061217
  28. FENTORA [Concomitant]
  29. ARAVA [Concomitant]
  30. LEXAPRO [Concomitant]
  31. ZELNORM [Concomitant]
  32. ALLEGRA [Concomitant]
  33. LIPITOR [Concomitant]
  34. NEXIUM [Concomitant]
  35. ATENOLOL [Concomitant]
  36. FOSAMAX [Concomitant]
  37. XANAX [Concomitant]
  38. LIDODERM [Concomitant]
  39. ZOLOFT [Concomitant]
  40. NEURONTIN [Concomitant]
  41. TOPAMAX [Concomitant]
  42. NORCO [Concomitant]
  43. KEPPRA [Concomitant]
  44. CELEBREX [Concomitant]
  45. BEXTRA [Concomitant]
  46. VIOXX [Concomitant]
  47. CELEXA [Concomitant]
  48. LORAZEPAM [Concomitant]
  49. HYDROCODONE BITARTRATE [Concomitant]
  50. SCOPOLAMINE [Concomitant]
  51. CLONIDINE HCL [Concomitant]
  52. GABITRIL [Concomitant]
  53. PROVIGIL [Concomitant]
  54. AVINZA [Concomitant]
  55. AMBIEN [Concomitant]
  56. FLOMAX [Concomitant]
  57. MOBIC [Concomitant]
  58. RESTORIL [Concomitant]
  59. PLAQUENIL [Concomitant]
  60. METHYLPREDNISOLONE [Concomitant]
  61. LUNESTA [Concomitant]
  62. METANX [Concomitant]

REACTIONS (19)
  - ABNORMAL BEHAVIOUR [None]
  - ANGER [None]
  - ANXIETY [None]
  - ARACHNOIDITIS [None]
  - BACK PAIN [None]
  - BIPOLAR I DISORDER [None]
  - BURNING SENSATION [None]
  - DEPENDENCE [None]
  - DRUG WITHDRAWAL SYNDROME [None]
  - HYPERHIDROSIS [None]
  - MEMORY IMPAIRMENT [None]
  - NAUSEA [None]
  - OVERDOSE [None]
  - PAIN [None]
  - SACROILIITIS [None]
  - SEDATION [None]
  - SOCIAL AVOIDANT BEHAVIOUR [None]
  - SUICIDAL IDEATION [None]
  - TOOTH LOSS [None]
